FAERS Safety Report 16060444 (Version 3)
Quarter: 2019Q2

REPORT INFORMATION
  Report Type: Spontaneous
  Country: JP (occurrence: JP)
  Receive Date: 20190312
  Receipt Date: 20190610
  Transmission Date: 20190711
  Serious: Yes (Hospitalization)
  Sender: FDA-Public Use
  Company Number: JP-ABBVIE-19K-087-2697992-00

PATIENT
  Age: 49 Year
  Sex: Male
  Weight: 63.9 kg

DRUGS (12)
  1. METHOTREXATE. [Suspect]
     Active Substance: METHOTREXATE
     Dosage: 14 MG/WEEK
     Route: 048
     Dates: start: 20170706, end: 20180808
  2. HUMIRA [Suspect]
     Active Substance: ADALIMUMAB
     Route: 058
     Dates: start: 20190404
  3. METHOTREXATE. [Suspect]
     Active Substance: METHOTREXATE
     Indication: RHEUMATOID ARTHRITIS
     Dosage: 8 MG/WEEK
     Route: 048
     Dates: start: 20140911, end: 20141008
  4. METHOTREXATE. [Suspect]
     Active Substance: METHOTREXATE
     Dosage: 10 MG/WEEK
     Route: 048
     Dates: start: 20160901, end: 20170705
  5. METHOTREXATE. [Suspect]
     Active Substance: METHOTREXATE
     Dosage: 16 MG/WEEK
     Route: 048
     Dates: start: 20141106, end: 20160511
  6. METHOTREXATE. [Suspect]
     Active Substance: METHOTREXATE
     Dosage: 12 MG/WEEK
     Route: 048
     Dates: start: 20180809, end: 20190218
  7. METHOTREXATE. [Suspect]
     Active Substance: METHOTREXATE
     Dosage: 12 MG/WEEK
     Route: 048
     Dates: start: 20190325
  8. HUMIRA [Suspect]
     Active Substance: ADALIMUMAB
     Indication: RHEUMATOID ARTHRITIS
     Route: 058
     Dates: start: 20141218, end: 20190214
  9. FOLIC ACID. [Concomitant]
     Active Substance: FOLIC ACID
     Indication: PROPHYLAXIS
     Route: 048
     Dates: start: 20140913, end: 20190220
  10. FOLIC ACID. [Concomitant]
     Active Substance: FOLIC ACID
     Route: 048
     Dates: start: 20190327
  11. METHOTREXATE. [Suspect]
     Active Substance: METHOTREXATE
     Dosage: 12 MG/WEEK
     Route: 048
     Dates: start: 20141009, end: 20141105
  12. METHOTREXATE. [Suspect]
     Active Substance: METHOTREXATE
     Dosage: 14 MG/WEEK
     Route: 048
     Dates: start: 20160512, end: 20160831

REACTIONS (3)
  - Organising pneumonia [Recovering/Resolving]
  - Rheumatoid arthritis [Unknown]
  - Lymphocyte count increased [Unknown]

NARRATIVE: CASE EVENT DATE: 20190218
